FAERS Safety Report 20189823 (Version 3)
Quarter: 2023Q2

REPORT INFORMATION
  Report Type: Spontaneous
  Country: JP (occurrence: JP)
  Receive Date: 20211215
  Receipt Date: 20230419
  Transmission Date: 20230722
  Serious: Yes (Hospitalization, Other)
  Sender: FDA-Public Use
  Company Number: JP-BAYER-2021A268208

PATIENT
  Age: 84 Year
  Sex: Male

DRUGS (5)
  1. NUBEQA [Interacting]
     Active Substance: DAROLUTAMIDE
     Indication: Hormone-refractory prostate cancer
     Dosage: 600 MG, BID
     Route: 048
     Dates: start: 20210322, end: 20210502
  2. NUBEQA [Interacting]
     Active Substance: DAROLUTAMIDE
     Indication: Hormone-refractory prostate cancer
     Dosage: DAILY DOSE 1200 MG
     Route: 048
     Dates: start: 20210517, end: 20210525
  3. NUBEQA [Interacting]
     Active Substance: DAROLUTAMIDE
     Indication: Hormone-refractory prostate cancer
     Dosage: 600MG
     Route: 048
     Dates: start: 20210602
  4. ROSUVASTATIN [Interacting]
     Active Substance: ROSUVASTATIN
     Indication: Hypercholesterolaemia
     Dosage: UNK
     Dates: start: 202105, end: 20210528
  5. LEUPROLIDE ACETATE [Concomitant]
     Active Substance: LEUPROLIDE ACETATE
     Indication: Hormone-refractory prostate cancer

REACTIONS (8)
  - Hypertensive heart disease [Recovered/Resolved]
  - Hypertensive heart disease [Recovering/Resolving]
  - Metastases to lung [None]
  - Hormone-refractory prostate cancer [None]
  - Fatigue [None]
  - Myalgia [None]
  - Prostatic specific antigen increased [None]
  - Labelled drug-drug interaction medication error [None]

NARRATIVE: CASE EVENT DATE: 20210502
